FAERS Safety Report 14927145 (Version 2)
Quarter: 2018Q3

REPORT INFORMATION
  Report Type: Report from Study
  Country: IT (occurrence: IT)
  Receive Date: 20180523
  Receipt Date: 20180711
  Transmission Date: 20181010
  Serious: Yes (Other)
  Sender: FDA-Public Use
  Company Number: IT-ROCHE-2126714

PATIENT
  Age: 52 Year
  Sex: Female
  Weight: 62 kg

DRUGS (6)
  1. XANAX [Concomitant]
     Active Substance: ALPRAZOLAM
     Dosage: ONGOING; FREQUENCY? 1 DIE
     Route: 048
  2. OCRELIZUMAB. [Suspect]
     Active Substance: OCRELIZUMAB
     Indication: MULTIPLE SCLEROSIS
     Dosage: SECOND INFUSION
     Route: 042
     Dates: start: 20180516, end: 20180516
  3. DIBASE [Concomitant]
     Active Substance: CHOLECALCIFEROL
     Indication: VITAMIN D DEFICIENCY
     Route: 048
  4. EFEXOR [Concomitant]
     Active Substance: VENLAFAXINE HYDROCHLORIDE
     Dosage: ONGOING; FREQUENCY? 1 DIE
     Route: 048
  5. OSSIBUTININA [Concomitant]
     Dosage: ONGOING; FREQUENCY? 1 DIE
     Route: 048
  6. LIORESAL [Concomitant]
     Active Substance: BACLOFEN
     Dosage: ONGOING; FREQUENCY? 2 DIE
     Route: 048

REACTIONS (3)
  - Pharyngeal oedema [Recovered/Resolved]
  - Tongue oedema [Recovered/Resolved]
  - Pruritus [Recovered/Resolved]

NARRATIVE: CASE EVENT DATE: 20180516
